FAERS Safety Report 13314211 (Version 1)
Quarter: 2017Q1

REPORT INFORMATION
  Report Type: Spontaneous
  Country: US (occurrence: US)
  Receive Date: 20170309
  Receipt Date: 20170309
  Transmission Date: 20170428
  Serious: Yes (Other)
  Sender: FDA-Public Use
  Company Number: US-AMGEN-USASP2017019643

PATIENT
  Age: 56 Year
  Sex: Male
  Weight: 180.4 kg

DRUGS (1)
  1. NPLATE [Suspect]
     Active Substance: ROMIPLOSTIM
     Indication: IMMUNE THROMBOCYTOPENIC PURPURA
     Dosage: 1 MUG/KG, QWK
     Route: 058
     Dates: start: 20160923

REACTIONS (5)
  - Chills [Not Recovered/Not Resolved]
  - Fatigue [Unknown]
  - Pyrexia [Not Recovered/Not Resolved]
  - Drug dose omission [Unknown]
  - Malaise [Unknown]

NARRATIVE: CASE EVENT DATE: 201612
